FAERS Safety Report 9223356 (Version 5)
Quarter: 2016Q2

REPORT INFORMATION
  Report Type: Spontaneous
  Country: US (occurrence: US)
  Receive Date: 20130410
  Receipt Date: 20160502
  Transmission Date: 20160815
  Serious: Yes (Hospitalization, Other)
  Sender: FDA-Public Use
  Company Number: US-009507513-1304USA003221

PATIENT
  Sex: Female
  Weight: 62.13 kg

DRUGS (3)
  1. FOSAMAX [Suspect]
     Active Substance: ALENDRONATE SODIUM
     Indication: OSTEOPOROSIS
     Dosage: UNK
     Route: 048
     Dates: start: 2010
  2. ALENDRONATE SODIUM. [Suspect]
     Active Substance: ALENDRONATE SODIUM
     Indication: OSTEOPOROSIS
     Dosage: 70 MG, UNKNOWN
     Route: 048
     Dates: start: 20120509
  3. ALENDRONATE SODIUM. [Suspect]
     Active Substance: ALENDRONATE SODIUM
     Indication: OSTEOPOROSIS
     Dosage: 70 MG, UNKNOWN
     Route: 048
     Dates: start: 20110404, end: 2013

REACTIONS (23)
  - Femur fracture [Recovered/Resolved]
  - Lower extremity mass [Unknown]
  - Adverse event [Unknown]
  - Humerus fracture [Unknown]
  - Cardiac disorder [Unknown]
  - Unevaluable event [Unknown]
  - Arthropathy [Unknown]
  - Constipation [Unknown]
  - Haemoglobin decreased [Unknown]
  - Femur fracture [Recovered/Resolved]
  - Inappropriate schedule of drug administration [Unknown]
  - Femur fracture [Recovered/Resolved]
  - Neck pain [Unknown]
  - Fall [Unknown]
  - Iliotibial band syndrome [Recovered/Resolved]
  - Osteopenia [Unknown]
  - Paraesthesia [Unknown]
  - Arteriosclerosis [Unknown]
  - Osteoarthritis [Unknown]
  - Joint arthroplasty [Unknown]
  - Anaemia [Unknown]
  - Impaired fasting glucose [Unknown]
  - Joint arthroplasty [Unknown]

NARRATIVE: CASE EVENT DATE: 201003
